FAERS Safety Report 7028480-6 (Version None)
Quarter: 2010Q4

REPORT INFORMATION
  Report Type: 
  Country: None (occurrence: None)
  Receive Date: 20101005
  Receipt Date: 20100928
  Transmission Date: 20110411
  Serious: Yes (Other)
  Sender: FDA-Public Use
  Company Number: US-PFIZER INC-2008041660

PATIENT
  Sex: Female
  Weight: 47.619 kg

DRUGS (5)
  1. CHANTIX [Suspect]
     Indication: SMOKING CESSATION THERAPY
     Dosage: UNK
     Dates: start: 20080301
  2. CHANTIX [Suspect]
     Dosage: UNK
     Route: 048
     Dates: start: 20100903, end: 20100901
  3. CHANTIX [Suspect]
     Dosage: 1 MG, 2X/DAY
     Route: 048
     Dates: start: 20100901
  4. NEURONTIN [Concomitant]
     Dosage: 800 MG, 4X/DAY
  5. CYMBALTA [Concomitant]
     Dosage: 60 MG, 1X/DAY

REACTIONS (2)
  - DEPRESSION [None]
  - DERMATITIS BULLOUS [None]
